FAERS Safety Report 11383820 (Version 1)
Quarter: 2015Q3

REPORT INFORMATION
  Report Type: Spontaneous
  Country: US (occurrence: US)
  Receive Date: 20150814
  Receipt Date: 20150814
  Transmission Date: 20151125
  Serious: Yes (Other)
  Sender: FDA-Public Use
  Company Number: US-ASTRAZENECA-2015SE77293

PATIENT
  Age: 923 Month
  Sex: Female
  Weight: 61.7 kg

DRUGS (7)
  1. MAGNESIUM [Concomitant]
     Active Substance: MAGNESIUM
     Route: 065
  2. PULMICORT FLEXHALER [Suspect]
     Active Substance: BUDESONIDE
     Indication: ASTHMA
     Dosage: TWO PUFFS, AS REQUIRED, UNKNOWN
     Route: 055
     Dates: start: 2004
  3. PULMICORT FLEXHALER [Suspect]
     Active Substance: BUDESONIDE
     Indication: ASTHMA
     Dosage: FOUR PUFFS, TWO TIMES A DAY, AS REQUIRED
     Route: 055
     Dates: start: 2004
  4. PRILOSEC [Suspect]
     Active Substance: OMEPRAZOLE MAGNESIUM
     Indication: GASTROOESOPHAGEAL REFLUX DISEASE
     Route: 048
     Dates: start: 20150806
  5. PRILOSEC OTC [Suspect]
     Active Substance: OMEPRAZOLE MAGNESIUM
     Indication: GASTROOESOPHAGEAL REFLUX DISEASE
     Route: 048
     Dates: start: 20150714, end: 20150724
  6. VITAMIN B12 [Concomitant]
     Active Substance: CYANOCOBALAMIN
     Route: 065
  7. PRILOSEC OTC [Suspect]
     Active Substance: OMEPRAZOLE MAGNESIUM
     Indication: GASTROOESOPHAGEAL REFLUX DISEASE
     Route: 048
     Dates: start: 2010

REACTIONS (21)
  - Head discomfort [Unknown]
  - Bronchial irritation [Recovered/Resolved]
  - Abdominal distension [Recovered/Resolved]
  - Burning sensation [Unknown]
  - Nausea [Unknown]
  - Pneumonia [Unknown]
  - Dysphonia [Unknown]
  - Chest discomfort [Unknown]
  - Bronchitis [Unknown]
  - Dyspepsia [Not Recovered/Not Resolved]
  - Pyrexia [Unknown]
  - Vomiting [Unknown]
  - Intentional product misuse [Unknown]
  - Asthma [Unknown]
  - Dizziness [Unknown]
  - Dyspnoea [Recovered/Resolved]
  - Gastrooesophageal reflux disease [Unknown]
  - Therapeutic reaction time decreased [Unknown]
  - Abdominal discomfort [Recovered/Resolved]
  - Respiratory tract infection [Unknown]
  - Abdominal pain upper [Unknown]

NARRATIVE: CASE EVENT DATE: 201504
